FAERS Safety Report 4844627-1 (Version None)
Quarter: 2005Q4

REPORT INFORMATION
  Report Type: 
  Country: None (occurrence: None)
  Receive Date: 20051205
  Receipt Date: 20051122
  Transmission Date: 20060501
  Serious: Yes (Hospitalization)
  Sender: FDA-Public Use
  Company Number: FR-NOVOPROD-248796

PATIENT
  Age: 42 Year
  Sex: Male

DRUGS (2)
  1. NOVOSEVEN [Suspect]
     Indication: OPERATIVE HAEMORRHAGE
     Dosage: 4.8 MG, UNK
     Route: 042
     Dates: start: 20050325, end: 20050325
  2. NOVOSEVEN [Suspect]
     Dosage: 4.8 MG, UNK
     Route: 042
     Dates: start: 20050325, end: 20050325

REACTIONS (2)
  - ARTERIAL THROMBOSIS [None]
  - PERIPHERAL ISCHAEMIA [None]
